FAERS Safety Report 15864933 (Version 1)
Quarter: 2019Q1

REPORT INFORMATION
  Report Type: Spontaneous
  Country: US (occurrence: US)
  Receive Date: 20190124
  Receipt Date: 20190124
  Transmission Date: 20190417
  Serious: Yes (Other)
  Sender: FDA-Public Use
  Company Number: US-ALLERGAN-1902995US

PATIENT
  Age: 75 Year
  Sex: Male

DRUGS (7)
  1. SINEMET [Concomitant]
     Active Substance: CARBIDOPA\LEVODOPA
     Indication: PARKINSON^S DISEASE
     Dosage: 10 MG, UNK
     Route: 048
  2. PAIN MEDICATION [Concomitant]
     Active Substance: UNSPECIFIED INGREDIENT
     Indication: BACK PAIN
  3. ANDRODERM [Suspect]
     Active Substance: TESTOSTERONE
     Indication: BLOOD TESTOSTERONE DECREASED
     Dosage: 4 MG, A DAY
     Route: 062
  4. ANDRODERM [Suspect]
     Active Substance: TESTOSTERONE
     Indication: ASTHENIA
  5. PAIN MEDICATION [Concomitant]
     Active Substance: UNSPECIFIED INGREDIENT
     Indication: PAIN
     Dosage: UNK UNK, BID
     Route: 048
  6. FINASTERIDE. [Concomitant]
     Active Substance: FINASTERIDE
     Indication: DYSURIA
     Dosage: UNK
     Route: 048
  7. TESTOSTERONE. [Concomitant]
     Active Substance: TESTOSTERONE
     Indication: PRODUCT USED FOR UNKNOWN INDICATION
     Dosage: 6 PILL TAPER OVER 1 WEEK
     Route: 048

REACTIONS (5)
  - Off label use [Unknown]
  - Dementia Alzheimer^s type [Unknown]
  - Application site reaction [Recovering/Resolving]
  - Back pain [Unknown]
  - Erythema [Recovering/Resolving]
